FAERS Safety Report 9879730 (Version 1)
Quarter: 2014Q1

REPORT INFORMATION
  Report Type: Spontaneous
  Country: US (occurrence: US)
  Receive Date: 20140206
  Receipt Date: 20140206
  Transmission Date: 20141002
  Serious: Yes (Other)
  Sender: FDA-Public Use
  Company Number: US-ACTAVIS-2014-01898

PATIENT
  Age: 3 Year
  Sex: Male

DRUGS (2)
  1. AMLODIPINE (UNKNOWN) [Suspect]
     Indication: ACCIDENTAL EXPOSURE TO PRODUCT BY CHILD
     Dosage: UNK
     Route: 048
  2. AMLODIPINE (UNKNOWN) [Suspect]
     Indication: HYPERTENSION

REACTIONS (3)
  - Bradycardia [Unknown]
  - Hypoperfusion [Unknown]
  - Accidental exposure to product by child [Unknown]
